FAERS Safety Report 4797054-X (Version None)
Quarter: 2005Q3

REPORT INFORMATION
  Report Type: 
  Country: None (occurrence: None)
  Receive Date: 20050916
  Receipt Date: 20050203
  Transmission Date: 20060218
  Serious: Yes (Hospitalization)
  Sender: FDA-Public Use
  Company Number: US-JNJFOC-20050201997

PATIENT
  Age: 16 Year
  Sex: Female

DRUGS (1)
  1. TOPAMAX [Suspect]
     Indication: MIGRAINE
     Dosage: 25MG IN AM/25MG IN PM

REACTIONS (5)
  - AGITATION [None]
  - CONFUSIONAL STATE [None]
  - HYPOAESTHESIA [None]
  - PARAESTHESIA [None]
  - PSYCHOTIC DISORDER [None]
